FAERS Safety Report 13463964 (Version 1)
Quarter: 2017Q2

REPORT INFORMATION
  Report Type: Spontaneous
  Country: US (occurrence: US)
  Receive Date: 20170420
  Receipt Date: 20170420
  Transmission Date: 20170830
  Serious: Yes (Other)
  Sender: FDA-Public Use
  Company Number: US-ROCHE-700280

PATIENT
  Age: 16 Year
  Sex: Male
  Weight: 74.8 kg

DRUGS (2)
  1. ACCUTANE [Suspect]
     Active Substance: ISOTRETINOIN
     Indication: ACNE
     Dosage: FORM: PILL
     Route: 065
     Dates: start: 20010417, end: 200108
  2. ERYTHROMYCIN. [Concomitant]
     Active Substance: ERYTHROMYCIN
     Indication: ACNE
     Route: 065

REACTIONS (4)
  - Colitis ulcerative [Unknown]
  - Blood alkaline phosphatase increased [Recovered/Resolved]
  - Inflammatory bowel disease [Unknown]
  - Proctitis ulcerative [Unknown]

NARRATIVE: CASE EVENT DATE: 20010511
